FAERS Safety Report 16012514 (Version 1)
Quarter: 2019Q1

REPORT INFORMATION
  Report Type: Report from Study
  Country: GB (occurrence: GB)
  Receive Date: 20190227
  Receipt Date: 20190227
  Transmission Date: 20190418
  Serious: Yes (Other)
  Sender: FDA-Public Use
  Company Number: GB-SA-2019SA050311

PATIENT
  Sex: Female

DRUGS (2)
  1. NOVORAPID [Concomitant]
     Active Substance: INSULIN ASPART
  2. INSULIN GLARGINE [Suspect]
     Active Substance: INSULIN GLARGINE
     Indication: DIABETES MELLITUS
     Dosage: 144 U
     Route: 058
     Dates: start: 201809

REACTIONS (7)
  - Hypoglycaemia [Not Recovered/Not Resolved]
  - Retinal tear [Not Recovered/Not Resolved]
  - Fluid retention [Not Recovered/Not Resolved]
  - Product use issue [Unknown]
  - Weight increased [Not Recovered/Not Resolved]
  - Dyspnoea [Not Recovered/Not Resolved]
  - Pain in extremity [Not Recovered/Not Resolved]
